FAERS Safety Report 9987952 (Version 1)
Quarter: 2014Q1

REPORT INFORMATION
  Report Type: Report from Study
  Country: JP (occurrence: JP)
  Receive Date: 20140307
  Receipt Date: 20140307
  Transmission Date: 20141002
  Serious: Yes (Hospitalization)
  Sender: FDA-Public Use
  Company Number: JP-B.I. PHARMACEUTICALS,INC./RIDGEFIELD-2014-BI-09062NB

PATIENT
  Age: 65 Year
  Sex: Male
  Weight: 60.3 kg

DRUGS (6)
  1. TRAZENTA [Suspect]
     Indication: TYPE 2 DIABETES MELLITUS
     Dosage: 5 MG
     Route: 048
     Dates: start: 20130515, end: 20130530
  2. FAMOTIDINE OD [Concomitant]
     Dosage: UNK
     Route: 048
  3. ALFASULY [Concomitant]
     Dosage: UNK
     Route: 048
  4. THEODUR [Concomitant]
     Dosage: UNK
     Route: 048
  5. NITRENAL [Concomitant]
     Dosage: UNK
     Route: 048
  6. ADOAIR [Concomitant]
     Dosage: UNK
     Route: 055

REACTIONS (2)
  - Asthma [Recovered/Resolved]
  - Liver disorder [Recovered/Resolved]
